FAERS Safety Report 9611086 (Version 2)
Quarter: 2013Q4

REPORT INFORMATION
  Report Type: Spontaneous
  Country: US (occurrence: US)
  Receive Date: 20131009
  Receipt Date: 20131009
  Transmission Date: 20140711
  Serious: Yes (Other)
  Sender: FDA-Public Use
  Company Number: US-SAVIENT-2013S1000066

PATIENT
  Age: 7 Decade
  Sex: Male

DRUGS (7)
  1. KRYSTEXXA [Suspect]
     Indication: GOUTY TOPHUS
     Route: 042
     Dates: start: 201306, end: 201306
  2. KRYSTEXXA [Suspect]
     Route: 042
     Dates: start: 201307, end: 201307
  3. BENADRYL [Concomitant]
     Indication: ALLERGY PROPHYLAXIS
     Route: 048
     Dates: start: 201306, end: 201306
  4. BENADRYL [Concomitant]
     Route: 048
     Dates: start: 201307, end: 201307
  5. TYLENOL [Concomitant]
     Indication: ALLERGY PROPHYLAXIS
     Route: 048
     Dates: start: 201306, end: 201306
  6. TYLENOL [Concomitant]
     Route: 048
     Dates: start: 201307, end: 201307
  7. SOLU MEDROL [Concomitant]
     Route: 042
     Dates: start: 201307, end: 201307

REACTIONS (3)
  - Infusion related reaction [Recovered/Resolved]
  - Therapeutic response decreased [Unknown]
  - Drug dose omission [Unknown]
